FAERS Safety Report 21391171 (Version 1)
Quarter: 2022Q3

REPORT INFORMATION
  Report Type: Spontaneous
  Country: US (occurrence: None)
  Receive Date: 20220928
  Receipt Date: 20220928
  Transmission Date: 20221026
  Serious: No
  Sender: FDA-Public Use
  Company Number: None

PATIENT
  Age: 72 Year
  Sex: Male

DRUGS (1)
  1. PREDNISONE [Suspect]
     Active Substance: PREDNISONE
     Indication: Gout
     Dosage: FREQUENCY : DAILY;?
     Route: 048
     Dates: start: 20201028, end: 20220729

REACTIONS (3)
  - Anaemia [None]
  - Gastric haemorrhage [None]
  - Peptic ulcer [None]

NARRATIVE: CASE EVENT DATE: 20220701
